FAERS Safety Report 8172737-2 (Version None)
Quarter: 2012Q1

REPORT INFORMATION
  Report Type: 
  Country: None (occurrence: None)
  Receive Date: 20120223
  Receipt Date: 20120211
  Transmission Date: 20120608
  Serious: Yes (Other)
  Sender: FDA-Public Use
  Company Number: 2012AP000357

PATIENT
  Age: 61 Year
  Sex: Female

DRUGS (5)
  1. ARIPIPRAZOLE [Concomitant]
  2. LORAZEPAM [Concomitant]
  3. OLANZAPINE [Suspect]
     Indication: PRODUCT USED FOR UNKNOWN INDICATION
     Dosage: 10 MG
  4. SODIUM VALERATE (VALPROATE SODIUM) [Concomitant]
  5. CLOZAPINE [Suspect]
     Indication: PRODUCT USED FOR UNKNOWN INDICATION
     Dosage: 400 MG;QD ; 50 MG;AM ; 125 MG;HS

REACTIONS (6)
  - MYOCARDIAL INFARCTION [None]
  - CATATONIA [None]
  - HYPOGLYCAEMIC ENCEPHALOPATHY [None]
  - DRUG WITHDRAWAL SYNDROME [None]
  - ELECTROCARDIOGRAM QT PROLONGED [None]
  - URINARY TRACT INFECTION [None]
